FAERS Safety Report 21489195 (Version 1)
Quarter: 2022Q4

REPORT INFORMATION
  Report Type: Spontaneous
  Country: JP (occurrence: JP)
  Receive Date: 20221021
  Receipt Date: 20221021
  Transmission Date: 20230113
  Serious: Yes (Hospitalization, Other)
  Sender: FDA-Public Use
  Company Number: JP-BRISTOL-MYERS SQUIBB COMPANY-BMS-2022-024406

PATIENT
  Age: 67 Year
  Sex: Male

DRUGS (10)
  1. YERVOY [Suspect]
     Active Substance: IPILIMUMAB
     Indication: Non-small cell lung cancer recurrent
     Route: 041
  2. YERVOY [Suspect]
     Active Substance: IPILIMUMAB
     Route: 041
  3. YERVOY [Suspect]
     Active Substance: IPILIMUMAB
     Route: 041
  4. NIVOLUMAB [Suspect]
     Active Substance: NIVOLUMAB
     Indication: Non-small cell lung cancer recurrent
     Route: 041
  5. NIVOLUMAB [Suspect]
     Active Substance: NIVOLUMAB
     Route: 041
  6. NIVOLUMAB [Suspect]
     Active Substance: NIVOLUMAB
     Route: 041
  7. ALIMTA [Concomitant]
     Active Substance: PEMETREXED DISODIUM
     Indication: Non-small cell lung cancer recurrent
     Dosage: ?500 MG/M2?
     Route: 065
  8. ALIMTA [Concomitant]
     Active Substance: PEMETREXED DISODIUM
  9. CARBOPLATIN [Concomitant]
     Active Substance: CARBOPLATIN
     Indication: Non-small cell lung cancer recurrent
     Route: 065
  10. PEMETREXED [Concomitant]
     Active Substance: PEMETREXED
     Indication: Non-small cell lung cancer recurrent
     Route: 065

REACTIONS (4)
  - Secondary adrenocortical insufficiency [Recovered/Resolved]
  - Hypopituitarism [Unknown]
  - Immune-mediated adrenal insufficiency [Recovered/Resolved]
  - Pleural effusion [Unknown]
